FAERS Safety Report 23405549 (Version 2)
Quarter: 2025Q1

REPORT INFORMATION
  Report Type: Spontaneous
  Country: PT (occurrence: PT)
  Receive Date: 20240116
  Receipt Date: 20250321
  Transmission Date: 20250409
  Serious: Yes (Hospitalization)
  Sender: TEVA
  Company Number: PT-TEVA-VS-3143467

PATIENT
  Age: 57 Year
  Sex: Female

DRUGS (3)
  1. QUETIAPINE [Suspect]
     Active Substance: QUETIAPINE
     Indication: Suicide attempt
     Route: 048
  2. TRAZODONE [Suspect]
     Active Substance: TRAZODONE HYDROCHLORIDE
     Indication: Persistent depressive disorder
     Dosage: EXTENDED-RELEASE TRAZODONE
     Route: 065
  3. ETHYL LOFLAZEPATE [Suspect]
     Active Substance: ETHYL LOFLAZEPATE
     Indication: Persistent depressive disorder
     Route: 065

REACTIONS (4)
  - Ectopic atrial rhythm [Recovered/Resolved]
  - Intentional overdose [Recovered/Resolved]
  - Drug ineffective [Unknown]
  - Suicide attempt [Recovered/Resolved]
